FAERS Safety Report 23409960 (Version 1)
Quarter: 2024Q1

REPORT INFORMATION
  Report Type: Spontaneous
  Country: US (occurrence: None)
  Receive Date: 20240116
  Receipt Date: 20240116
  Transmission Date: 20240410
  Serious: Yes (Hospitalization)
  Sender: FDA-Public Use
  Company Number: None

PATIENT
  Sex: Female

DRUGS (4)
  1. IBRANCE [Suspect]
     Active Substance: PALBOCICLIB
     Indication: Breast cancer female
     Dosage: 75MG ONCE DAILY BY MOUTH?
     Route: 048
     Dates: start: 202011
  2. IBRANCE [Suspect]
     Active Substance: PALBOCICLIB
     Indication: Breast cancer female
  3. FULVESTRANT [Concomitant]
     Active Substance: FULVESTRANT
  4. HEPARIN L/L FLUSH SYRINGE [Concomitant]

REACTIONS (2)
  - Herpes zoster [None]
  - Therapy interrupted [None]
